FAERS Safety Report 8300719-6 (Version None)
Quarter: 2012Q1

REPORT INFORMATION
  Report Type: 
  Country: None (occurrence: None)
  Receive Date: 20120326
  Receipt Date: 20110630
  Transmission Date: 20120608
  Serious: Yes (Other)
  Sender: FDA-Public Use
  Company Number: PHHY2011US58172

PATIENT
  Sex: Female

DRUGS (11)
  1. TASIGNA [Suspect]
     Dosage: 300 MG, BID, ORAL ; 200 MG, ORAL
     Route: 048
  2. IRON (IRON) [Concomitant]
  3. FOLIC ACID [Concomitant]
  4. METFORMIN HCL [Concomitant]
  5. HUMALOG [Concomitant]
  6. GLIPIZIDE [Concomitant]
  7. RAMIPRIL [Concomitant]
  8. LANTUS [Concomitant]
  9. SIMVASTATIN [Concomitant]
  10. ASPIRIN [Concomitant]
  11. MAGNESIUM (MAGNESIUM) [Concomitant]

REACTIONS (1)
  - ELECTROCARDIOGRAM QT PROLONGED [None]
